FAERS Safety Report 7026785-6 (Version None)
Quarter: 2010Q4

REPORT INFORMATION
  Report Type: 
  Country: None (occurrence: None)
  Receive Date: 20101004
  Receipt Date: 20100924
  Transmission Date: 20110411
  Serious: Yes (Death, Other)
  Sender: FDA-Public Use
  Company Number: JP-ROCHE-724320

PATIENT
  Sex: Female
  Weight: 38 kg

DRUGS (7)
  1. AVASTIN [Suspect]
     Indication: LARGE CELL CARCINOMA OF THE RESPIRATORY TRACT STAGE UNSPECIFIED
     Route: 041
     Dates: start: 20100714, end: 20100714
  2. CARBOPLATIN [Suspect]
     Indication: LARGE CELL CARCINOMA OF THE RESPIRATORY TRACT STAGE UNSPECIFIED
     Route: 041
     Dates: start: 20100714, end: 20100714
  3. PACLITAXEL [Suspect]
     Indication: LARGE CELL CARCINOMA OF THE RESPIRATORY TRACT STAGE UNSPECIFIED
     Route: 041
     Dates: start: 20100714, end: 20100714
  4. ALIMTA [Suspect]
     Indication: LARGE CELL CARCINOMA OF THE RESPIRATORY TRACT STAGE UNSPECIFIED
     Dosage: DOSAGE IS UNCERTAIN
     Route: 041
     Dates: start: 20100811
  5. CISPLATIN [Suspect]
     Indication: LARGE CELL CARCINOMA OF THE RESPIRATORY TRACT STAGE UNSPECIFIED
     Dosage: DOSAGE IS UNCERTAIN.
     Route: 041
     Dates: start: 20100811
  6. AMOBAN [Concomitant]
     Route: 048
     Dates: start: 20100713, end: 20100825
  7. MUCODYNE [Concomitant]
     Dosage: FORM: PERORAL AGENT
     Route: 048
     Dates: start: 20100713, end: 20100825

REACTIONS (4)
  - CARDIO-RESPIRATORY ARREST [None]
  - EPISTAXIS [None]
  - HAEMOPTYSIS [None]
  - LOSS OF CONSCIOUSNESS [None]
